FAERS Safety Report 25035969 (Version 1)
Quarter: 2025Q1

REPORT INFORMATION
  Report Type: Spontaneous
  Country: HU (occurrence: HU)
  Receive Date: 20250304
  Receipt Date: 20250304
  Transmission Date: 20250408
  Serious: Yes (Other)
  Sender: ROCHE
  Company Number: HU-ROCHE-10000214645

PATIENT
  Sex: Female

DRUGS (1)
  1. TAMIFLU [Suspect]
     Active Substance: OSELTAMIVIR PHOSPHATE
     Indication: Product used for unknown indication
     Route: 065

REACTIONS (6)
  - Hallucination [Unknown]
  - Pyrexia [Unknown]
  - Tremor [Unknown]
  - Speech disorder [Unknown]
  - Palpitations [Unknown]
  - Dyspnoea [Unknown]
